FAERS Safety Report 5386941-X (Version None)
Quarter: 2007Q3

REPORT INFORMATION
  Report Type: 
  Country: None (occurrence: None)
  Receive Date: 20070713
  Receipt Date: 20070702
  Transmission Date: 20080115
  Serious: Yes (Hospitalization, Other)
  Sender: FDA-Public Use
  Company Number: US-PFIZER INC-2007054511

PATIENT
  Sex: Female

DRUGS (1)
  1. CELEBREX [Suspect]
     Indication: ARTHRITIS
     Dates: start: 20030730, end: 20040401

REACTIONS (4)
  - HYPERTENSION [None]
  - MYOCARDIAL INFARCTION [None]
  - PANIC ATTACK [None]
  - SLEEP APNOEA SYNDROME [None]
